FAERS Safety Report 8546883-5 (Version None)
Quarter: 2012Q3

REPORT INFORMATION
  Report Type: 
  Country: None (occurrence: None)
  Receive Date: 20120727
  Receipt Date: 20120126
  Transmission Date: 20120928
  Serious: No
  Sender: FDA-Public Use
  Company Number: US-ASTRAZENECA-2012SE03187

PATIENT
  Age: 51 Year
  Sex: Female
  Weight: 87.1 kg

DRUGS (20)
  1. SEROQUEL [Suspect]
     Indication: SLEEP DISORDER
     Route: 048
  2. SEROQUEL [Suspect]
     Route: 048
  3. SEROQUEL [Suspect]
     Route: 048
  4. ANTI-DEPRESSANT [Suspect]
     Route: 065
  5. GENERIC OF NORVASC [Concomitant]
     Indication: BLOOD PRESSURE ABNORMAL
     Dosage: AT NIGHT
     Route: 048
  6. LOSARTAN POTASSIUM AND HYDROCHLOROTHIAZIDE [Concomitant]
     Indication: BLOOD PRESSURE ABNORMAL
     Dosage: Q AM
     Route: 048
  7. SEROQUEL [Suspect]
     Route: 048
  8. SEROQUEL [Suspect]
     Route: 048
  9. RITALIN [Suspect]
     Indication: DEPRESSION
     Route: 065
  10. GARLIQUE [Concomitant]
     Indication: CARDIOVASCULAR EVENT PROPHYLAXIS
     Route: 048
  11. POTASSIUM CHLORIDE [Concomitant]
     Route: 048
  12. GARLIQUE [Concomitant]
     Indication: LIVER DISORDER
     Route: 048
  13. SEROQUEL [Suspect]
     Indication: BIPOLAR DISORDER
     Route: 048
  14. KLONIPINE [Concomitant]
     Indication: ANXIETY
     Route: 048
  15. CALCIUM WITH VITAMIN D [Concomitant]
     Route: 048
  16. SEROQUEL [Suspect]
     Route: 048
  17. SEROQUEL [Suspect]
     Route: 048
  18. SEROQUEL [Suspect]
     Indication: INSOMNIA
     Route: 048
  19. METOPROLOL TARTRATE [Concomitant]
     Indication: HYPERTENSION
     Route: 048
  20. LOVAZA [Concomitant]
     Route: 048

REACTIONS (13)
  - INSOMNIA [None]
  - HYPERSOMNIA [None]
  - OFF LABEL USE [None]
  - ANXIETY [None]
  - BIPOLAR DISORDER [None]
  - ANXIETY DISORDER [None]
  - HYPERPHAGIA [None]
  - WRONG TECHNIQUE IN DRUG USAGE PROCESS [None]
  - SOMNOLENCE [None]
  - DRUG DOSE OMISSION [None]
  - DELIRIUM [None]
  - FATIGUE [None]
  - MIDDLE INSOMNIA [None]
